FAERS Safety Report 6423968-0 (Version None)
Quarter: 2009Q4

REPORT INFORMATION
  Report Type: 
  Country: None (occurrence: None)
  Receive Date: 20091102
  Receipt Date: 20091027
  Transmission Date: 20100525
  Serious: Yes (Death, Hospitalization, Other)
  Sender: FDA-Public Use
  Company Number: PHHY2009MX42792

PATIENT
  Sex: Female

DRUGS (3)
  1. DIOVAN HCT [Suspect]
     Indication: HYPERTENSION
     Dosage: 1 TABLET (80/12.5 MG)/DAY
     Route: 048
     Dates: start: 20040301, end: 20090815
  2. INSULIN [Concomitant]
     Indication: DIABETES MELLITUS
  3. THYROID THERAPY [Concomitant]

REACTIONS (6)
  - ANAEMIA [None]
  - CARDIAC ARREST [None]
  - HAEMORRHAGE [None]
  - HEPATIC CIRRHOSIS [None]
  - HEPATIC HAEMORRHAGE [None]
  - HYPERTENSION [None]
